FAERS Safety Report 23180513 (Version 1)
Quarter: 2023Q4

REPORT INFORMATION
  Report Type: Spontaneous
  Country: GB (occurrence: GB)
  Receive Date: 20231114
  Receipt Date: 20231114
  Transmission Date: 20240109
  Serious: Yes (Death, Hospitalization, Other)
  Sender: FDA-Public Use
  Company Number: GB-AMGEN-GBRSP2022132353

PATIENT
  Age: 59 Year
  Sex: Male
  Weight: 62 kg

DRUGS (189)
  1. ARIPIPRAZOLE [Suspect]
     Active Substance: ARIPIPRAZOLE
     Indication: Schizophrenia
     Dosage: 5 MILLIGRAM
     Route: 048
  2. DOCETAXEL [Suspect]
     Active Substance: DOCETAXEL\DOCETAXEL ANHYDROUS
     Indication: Breast cancer metastatic
     Dosage: 220 MILLIGRAM, DURATION : 22 DAYS
     Route: 065
     Dates: start: 20150930, end: 20151021
  3. DOCETAXEL [Suspect]
     Active Substance: DOCETAXEL\DOCETAXEL ANHYDROUS
     Dosage: UNK, DURATION : 63 DAYS, THERAPY END DATE : NASK
     Route: 065
     Dates: start: 20151222
  4. DOCETAXEL [Suspect]
     Active Substance: DOCETAXEL\DOCETAXEL ANHYDROUS
     Dosage: 220 MILLIGRAM, THERAPY END DATE : NASK
     Route: 065
     Dates: start: 20151222
  5. DOCETAXEL [Suspect]
     Active Substance: DOCETAXEL\DOCETAXEL ANHYDROUS
     Dosage: 110 MILLIGRAM, Q3WK, DURATION : 22 DAYS
     Route: 065
     Dates: start: 20150930, end: 20151021
  6. PACLITAXEL [Suspect]
     Active Substance: PACLITAXEL
     Indication: Breast cancer metastatic
     Dosage: 150 MG, QW (CUMULATIVE DOSE: 428.57 MG, DURATION : 42 DAYS
     Route: 040
     Dates: start: 20151111, end: 20151222
  7. PACLITAXEL [Suspect]
     Active Substance: PACLITAXEL
     Dosage: 120 MILLIGRAM, QWK, DURATION : 1 DAY
     Route: 065
     Dates: start: 20151223, end: 20151223
  8. PACLITAXEL [Suspect]
     Active Substance: PACLITAXEL
     Dosage: 120 MILLIGRAM, QW, DURATION : 1 DAY
     Route: 042
     Dates: start: 20151223, end: 20151223
  9. PACLITAXEL [Suspect]
     Active Substance: PACLITAXEL
     Dosage: 120 MILLIGRAM, QWK, THERAPY END DATE : NASK
     Route: 065
     Dates: start: 20151111
  10. HALOPERIDOL [Suspect]
     Active Substance: HALOPERIDOL
     Indication: Schizophrenia
     Dosage: 10 MILLIGRAM DAILY; 10 MILLIGRAM, QD
     Route: 048
  11. HALOPERIDOL [Suspect]
     Active Substance: HALOPERIDOL
     Dosage: 10 MILLIGRAM DAILY; 5 MILLIGRAM, BID
     Route: 048
  12. HALOPERIDOL [Suspect]
     Active Substance: HALOPERIDOL
     Dosage: 10 MILLIGRAM DAILY; 10 MILLIGRAM, QD
     Route: 048
  13. HALOPERIDOL [Suspect]
     Active Substance: HALOPERIDOL
     Dosage: 5 MILLIGRAM DAILY; 5 MILLIGRAM, QD
     Route: 048
  14. HALOPERIDOL [Suspect]
     Active Substance: HALOPERIDOL
     Dosage: 40 MILLIGRAM DAILY; 40 MG, QD
     Route: 048
  15. HALOPERIDOL [Suspect]
     Active Substance: HALOPERIDOL
     Dosage: 40 MILLIGRAM DAILY; 40 MILLIGRAM, QD
     Route: 048
  16. HALOPERIDOL [Suspect]
     Active Substance: HALOPERIDOL
     Dosage: 40 MILLIGRAM DAILY; 20 MILLIGRAM, BID
     Route: 048
  17. HALOPERIDOL [Suspect]
     Active Substance: HALOPERIDOL
     Dosage: 20 MILLIGRAM DAILY; 20 MILLIGRAM, QD
     Route: 048
  18. HALOPERIDOL [Suspect]
     Active Substance: HALOPERIDOL
     Dosage: 20 MILLIGRAM
     Route: 048
  19. HALOPERIDOL [Suspect]
     Active Substance: HALOPERIDOL
     Dosage: 5 MILLIGRAM DAILY; 5 MILLIGRAM, QD
     Route: 048
  20. HALOPERIDOL [Suspect]
     Active Substance: HALOPERIDOL
     Dosage: 20 MILLIGRAM DAILY; 20 MILLIGRAM, QD
     Route: 048
  21. HALOPERIDOL [Suspect]
     Active Substance: HALOPERIDOL
     Dosage: 40 MILLIGRAM DAILY; 20 MILLIGRAM, Q12H
     Route: 048
  22. OLANZAPINE [Suspect]
     Active Substance: OLANZAPINE
     Indication: Schizophrenia
     Dosage: 2.5 MILLIGRAM, THERAPY END DATE : NASK
     Route: 048
     Dates: start: 20080823
  23. OLANZAPINE [Suspect]
     Active Substance: OLANZAPINE
     Dosage: 15 MILLIGRAM, THERAPY END DATE : NASK
     Route: 048
     Dates: start: 20060704
  24. OLANZAPINE [Suspect]
     Active Substance: OLANZAPINE
     Dosage: UNK
     Route: 048
  25. OLANZAPINE [Suspect]
     Active Substance: OLANZAPINE
     Dosage: 10 MILLIGRAM
     Route: 048
  26. OLANZAPINE [Suspect]
     Active Substance: OLANZAPINE
     Dosage: 1 MILLIGRAM
     Route: 048
  27. OLANZAPINE [Suspect]
     Active Substance: OLANZAPINE
     Dosage: 15 MILLIGRAM, THERAPY END DATE : NASK
     Route: 048
     Dates: start: 20040217
  28. OLANZAPINE [Suspect]
     Active Substance: OLANZAPINE
     Dosage: 10 MILLIGRAM
     Route: 048
  29. RISPERIDONE [Suspect]
     Active Substance: RISPERIDONE
     Indication: Schizophrenia
     Dosage: 1 GRAM DAILY; 1 GRAM, QD
     Route: 048
  30. RISPERIDONE [Suspect]
     Active Substance: RISPERIDONE
     Dosage: 4 MILLIGRAM DAILY; 4 MILLIGRAM, QD
     Route: 048
  31. RISPERIDONE [Suspect]
     Active Substance: RISPERIDONE
     Dosage: 4 MILLIGRAM DAILY; 2 MG, BID
     Route: 065
  32. RISPERIDONE [Suspect]
     Active Substance: RISPERIDONE
     Dosage: 1 MILLIGRAM
     Route: 048
  33. RISPERIDONE [Suspect]
     Active Substance: RISPERIDONE
     Dosage: 3 MILLIGRAM DAILY; 3 MILLIGRAM, QD
     Route: 048
  34. RISPERIDONE [Suspect]
     Active Substance: RISPERIDONE
     Dosage: 6 MILLIGRAM DAILY; 6 MILLIGRAM, QD
     Route: 048
  35. RISPERIDONE [Suspect]
     Active Substance: RISPERIDONE
     Dosage: 2 MILLIGRAM DAILY; 2 MILLIGRAM, QD
     Route: 048
  36. CHLORPROMAZINE [Suspect]
     Active Substance: CHLORPROMAZINE
     Indication: Schizophrenia
     Dosage: 75 MG
     Route: 048
  37. LORAZEPAM [Suspect]
     Active Substance: LORAZEPAM
     Indication: Schizophrenia
     Dosage: 1 MILLIGRAM
     Route: 048
  38. LORAZEPAM [Suspect]
     Active Substance: LORAZEPAM
     Indication: Schizophrenia
  39. LITHIUM [Suspect]
     Active Substance: LITHIUM
     Indication: Product used for unknown indication
     Dosage: 1 GRAM
     Route: 048
  40. LITHIUM [Suspect]
     Active Substance: LITHIUM
     Dosage: 6 MILLIGRAM DAILY; 6 MILLIGRAM, QD
     Route: 048
  41. LITHIUM [Suspect]
     Active Substance: LITHIUM
     Dosage: 2 GRAM
     Route: 048
  42. LITHIUM [Suspect]
     Active Substance: LITHIUM
     Dosage: 1 MILLIGRAM
     Route: 048
  43. PERTUZUMAB [Suspect]
     Active Substance: PERTUZUMAB
     Indication: Breast cancer metastatic
     Dosage: 2 U, WEEKLY (1/W)
     Route: 040
  44. PERTUZUMAB [Suspect]
     Active Substance: PERTUZUMAB
     Dosage: UNK, QWK
     Route: 065
  45. PERTUZUMAB [Suspect]
     Active Substance: PERTUZUMAB
     Dosage: 840 MILLIGRAM, Q3WK, THERAPY END DATE : NASK
     Route: 065
     Dates: start: 20151021
  46. PERTUZUMAB [Suspect]
     Active Substance: PERTUZUMAB
     Dosage: 840 MILLIGRAM, Q3WK, THERAPY END DATE : NASK
     Route: 065
     Dates: start: 20150930
  47. PERTUZUMAB [Suspect]
     Active Substance: PERTUZUMAB
     Dosage: 420 MILLIGRAM, Q3WK, THERAPY END DATE : NASK
     Route: 065
     Dates: start: 20151021
  48. RISPERDAL [Suspect]
     Active Substance: RISPERIDONE
     Indication: Schizophrenia
     Dosage: 6 MILLIGRAM DAILY; 6 MILLIGRAM, QD
     Route: 048
  49. RISPERDAL [Suspect]
     Active Substance: RISPERIDONE
     Dosage: 4 MILLIGRAM DAILY; 4 MILLIGRAM, ONCE A DAY (4 MG, QD), UNIT DOSE : 2 MG
     Route: 065
  50. RISPERDAL [Suspect]
     Active Substance: RISPERIDONE
     Dosage: 1 GRAM DAILY; 1 GRAM, QD
     Route: 048
  51. RISPERDAL [Suspect]
     Active Substance: RISPERIDONE
     Dosage: 4 MILLIGRAM DAILY; 2 MILLIGRAM, BID
     Route: 048
  52. RISPERDAL [Suspect]
     Active Substance: RISPERIDONE
     Dosage: 4 MILLIGRAM DAILY; 4 MILLIGRAM, QD
     Route: 048
  53. RISPERDAL [Suspect]
     Active Substance: RISPERIDONE
     Dosage: 6 MILLIGRAM DAILY; 3 MILLIGRAM, BD
     Route: 048
  54. RISPERDAL [Suspect]
     Active Substance: RISPERIDONE
     Dosage: 1 MILLIGRAM DAILY; 1 MILLIGRAM, QD
     Route: 048
  55. RISPERDAL [Suspect]
     Active Substance: RISPERIDONE
     Dosage: 6 MILLIGRAM DAILY; 3 MILLIGRAM, Q12H
     Route: 048
  56. RISPERDAL [Suspect]
     Active Substance: RISPERIDONE
     Dosage: 8 MILLIGRAM DAILY; 4 MILLIGRAM, BID
     Route: 048
  57. RISPERDAL [Suspect]
     Active Substance: RISPERIDONE
     Dosage: 4 MILLIGRAM DAILY; 4 MILLIGRAM, QD
     Route: 048
  58. RISPERDAL [Suspect]
     Active Substance: RISPERIDONE
     Dosage: 6 MILLIGRAM DAILY; 6 MILLIGRAM, QD
     Route: 048
  59. RISPERDAL [Suspect]
     Active Substance: RISPERIDONE
     Dosage: 8 MILLIGRAM DAILY; 4 MILLIGRAM, BID
     Route: 048
  60. RISPERDAL [Suspect]
     Active Substance: RISPERIDONE
     Dosage: 1 GRAM DAILY; 1 GRAM, QD
     Route: 048
  61. RISPERDAL [Suspect]
     Active Substance: RISPERIDONE
     Dosage: 1 GRAM DAILY; 1 GRAM, QD
     Route: 048
  62. RISPERDAL [Suspect]
     Active Substance: RISPERIDONE
     Dosage: 6 MILLIGRAM DAILY; 3 MILLIGRAM, BID
     Route: 048
  63. RISPERDAL [Suspect]
     Active Substance: RISPERIDONE
     Dosage: 12 MILLIGRAM DAILY; 6 MILLIGRAM, BID
     Route: 048
  64. RISPERDAL [Suspect]
     Active Substance: RISPERIDONE
     Dosage: 1 GRAM DAILY; 1 GRAM, QD
     Route: 048
  65. RISPERDAL [Suspect]
     Active Substance: RISPERIDONE
     Dosage: 4 MILLIGRAM DAILY; 2 MILLIGRAM, Q12H
     Route: 048
  66. RISPERDAL [Suspect]
     Active Substance: RISPERIDONE
     Dosage: 4 MILLIGRAM DAILY; 4 MILLIGRAM, QD
     Route: 048
  67. RISPERDAL [Suspect]
     Active Substance: RISPERIDONE
     Dosage: 1 GRAM DAILY; 1 GRAM, QD
     Route: 048
  68. RISPERDAL [Suspect]
     Active Substance: RISPERIDONE
     Dosage: 6 MILLIGRAM DAILY; 3 MILLIGRAM, BID
     Route: 048
  69. RISPERDAL [Suspect]
     Active Substance: RISPERIDONE
     Dosage: 8 MILLIGRAM DAILY; 4 MILLIGRAM, BID
     Route: 048
  70. RISPERDAL [Suspect]
     Active Substance: RISPERIDONE
     Dosage: 1 MILLIGRAM DAILY; 1 MILLIGRAM, QD
     Route: 048
  71. RISPERDAL [Suspect]
     Active Substance: RISPERIDONE
     Dosage: 2 MILLIGRAM
     Route: 048
  72. RISPERDAL [Suspect]
     Active Substance: RISPERIDONE
     Dosage: 1 GRAM DAILY; 1 GRAM, QD
     Route: 048
  73. RISPERDAL [Suspect]
     Active Substance: RISPERIDONE
     Dosage: 1 MILLIGRAM DAILY; 1 MILLIGRAM, QD
     Route: 048
  74. RISPERDAL [Suspect]
     Active Substance: RISPERIDONE
     Dosage: 6 MILLIGRAM DAILY; 3 MILLIGRAM, Q12H
     Route: 048
  75. TRASTUZUMAB [Suspect]
     Active Substance: TRASTUZUMAB
     Indication: Breast cancer metastatic
     Dosage: 840 MILLIGRAM, Q3WK
     Route: 065
  76. TRASTUZUMAB [Suspect]
     Active Substance: TRASTUZUMAB
     Dosage: 1218 MILLIGRAM, QWK, THERAPY END DATE : NASK
     Route: 065
     Dates: start: 20150930
  77. TRASTUZUMAB [Suspect]
     Active Substance: TRASTUZUMAB
     Dosage: 1218 MILLIGRAM, QWK, THERAPY END DATE : NASK
     Route: 065
     Dates: start: 20150930
  78. TRASTUZUMAB [Suspect]
     Active Substance: TRASTUZUMAB
     Dosage: 1827 MILLIGRAM, QWK, THERAPY END DATE: NASK
     Route: 065
     Dates: start: 20150930
  79. TRASTUZUMAB [Suspect]
     Active Substance: TRASTUZUMAB
     Dosage: 420 MILLIGRAM, Q3WK
     Route: 065
  80. TRASTUZUMAB [Suspect]
     Active Substance: TRASTUZUMAB
     Dosage: 609 MILLIGRAM, Q3WK, THERAPY END DATE: NASK
     Route: 065
     Dates: start: 20150930
  81. XGEVA [Suspect]
     Active Substance: DENOSUMAB
     Indication: Metastases to bone
     Dosage: 120 MILLIGRAM, OTHER (EVERY 9 WEEKS), THERAPY END DATE: NASK
     Route: 058
     Dates: start: 20150930
  82. XGEVA [Suspect]
     Active Substance: DENOSUMAB
     Indication: Gastrooesophageal reflux disease
     Dosage: 120 MILLIGRAM DAILY; 120 MILLIGRAM, QD
     Route: 065
  83. ZUCLOPENTHIXOL [Suspect]
     Active Substance: ZUCLOPENTHIXOL
     Indication: Product used for unknown indication
     Dosage: 300 MILLIGRAM, QWK, THERAPY END DATE : NASK
     Route: 048
     Dates: start: 20091018
  84. ZUCLOPENTHIXOL [Suspect]
     Active Substance: ZUCLOPENTHIXOL
     Dosage: 400 MILLIGRAM, CYCLICAL, (400 MG, CYCLIC (400 MG, BIWEEKLY), DURATION : 106 DAYS
     Route: 048
     Dates: start: 20040217, end: 20040601
  85. ZUCLOPENTHIXOL [Suspect]
     Active Substance: ZUCLOPENTHIXOL
     Dosage: 400 MILLIGRAM, QWK, DURATION : 106 DAYS
     Route: 048
     Dates: start: 20040217, end: 20040601
  86. ZUCLOPENTHIXOL [Suspect]
     Active Substance: ZUCLOPENTHIXOL
     Dosage: 400 MILLIGRAM, DURATION : 106 DAYS
     Route: 048
     Dates: start: 20040217, end: 20040601
  87. CLOZARIL [Suspect]
     Active Substance: CLOZAPINE
     Indication: Schizophrenia
     Dosage: 6000 MILLIGRAM, DURATION : 14 DAYS
     Route: 048
     Dates: start: 20201209, end: 20201223
  88. CLOZARIL [Suspect]
     Active Substance: CLOZAPINE
     Dosage: 275 MILLIGRAM DAILY; 275 MILLIGRAM, QD
     Route: 048
  89. CLOZARIL [Suspect]
     Active Substance: CLOZAPINE
     Dosage: 6000 MILLIGRAM, THERAPY END DATE : NASK
     Route: 048
     Dates: start: 20200521
  90. CLOZARIL [Suspect]
     Active Substance: CLOZAPINE
     Dosage: UNK UNK, QD, DURATION : 1 DAY
     Route: 048
     Dates: start: 20190823, end: 20190823
  91. CLOZARIL [Suspect]
     Active Substance: CLOZAPINE
     Dosage: 50 MILLIGRAM DAILY; 50 MILLIGRAM, QD, THERAPY END DATE: NASK
     Route: 048
     Dates: start: 20200521
  92. CLOZARIL [Suspect]
     Active Substance: CLOZAPINE
     Dosage: 275 MILLIGRAM DAILY; 275 MILLIGRAM, QD, THERAPY END DATE: NASK
     Route: 048
  93. CLOZARIL [Suspect]
     Active Substance: CLOZAPINE
     Dosage: 245 MILLIGRAM DAILY; 245 MILLIGRAM, QD
     Route: 048
  94. CLOZARIL [Suspect]
     Active Substance: CLOZAPINE
     Dosage: 6000 MILLIGRAM, DURATION : 1 DAY
     Route: 048
     Dates: start: 20201223, end: 20201223
  95. CLOZARIL [Suspect]
     Active Substance: CLOZAPINE
     Dosage: 400 MILLIGRAM DAILY; 400 MILLIGRAM, QD, DURATION : 1 DAY
     Route: 048
     Dates: start: 20191223, end: 20191223
  96. CLOZARIL [Suspect]
     Active Substance: CLOZAPINE
     Dosage: 1600 MILLIGRAM DAILY; 800 MILLIGRAM, BID
     Route: 048
  97. CLOZARIL [Suspect]
     Active Substance: CLOZAPINE
     Dosage: 800 MILLIGRAM DAILY; 400 MILLIGRAM, BID
     Route: 048
  98. CLOZARIL [Suspect]
     Active Substance: CLOZAPINE
     Dosage: 400 MILLIGRAM DAILY; 200 MILLIGRAM, BID, DURATION : 15 DAYS
     Route: 048
     Dates: start: 20191209, end: 20191223
  99. CLOZARIL [Suspect]
     Active Substance: CLOZAPINE
     Dosage: 400 MILLIGRAM DAILY; 200 MILLIGRAM, BID
     Route: 048
  100. CLOZARIL [Suspect]
     Active Substance: CLOZAPINE
     Dosage: 245 MILLIGRAM DAILY; 245 MILLIGRAM, QD, THERAPY END DATE : NASK
     Route: 048
     Dates: start: 20200521
  101. CLOZARIL [Suspect]
     Active Substance: CLOZAPINE
     Dosage: 50 MILLIGRAM DAILY; 50 MILLIGRAM, QD, DURATION : 15 DAYS
     Route: 048
     Dates: start: 20190809, end: 20190823
  102. CLOZARIL [Suspect]
     Active Substance: CLOZAPINE
     Dosage: 245 MILLIGRAM DAILY; 245 MILLIGRAM, QD, THERAPY END DATE : NASK
     Route: 048
     Dates: start: 20191207
  103. CLOZARIL [Suspect]
     Active Substance: CLOZAPINE
     Dosage: 100 MILLIGRAM DAILY; 100 MILLIGRAM, QD
     Route: 048
  104. CLOZARIL [Suspect]
     Active Substance: CLOZAPINE
     Dosage: 6000 MILLIGRAM, DURATION : 1 DAY
     Route: 048
     Dates: start: 20191223, end: 20191223
  105. CLOZARIL [Suspect]
     Active Substance: CLOZAPINE
     Dosage: 6000 MILLIGRAM, THERAPY END DATE : NASK
     Route: 048
     Dates: start: 20200207
  106. CLOZARIL [Suspect]
     Active Substance: CLOZAPINE
     Dosage: 6000 MILLIGRAM, THERAPY END DATE : NASK
     Route: 048
     Dates: start: 20201207
  107. CLOZARIL [Suspect]
     Active Substance: CLOZAPINE
     Dosage: 400 MILLIGRAM DAILY; 400 MILLIGRAM, QD
     Route: 048
  108. CLOZARIL [Suspect]
     Active Substance: CLOZAPINE
     Dosage: 550 MILLIGRAM DAILY; 275 MILLIGRAM, BID
     Route: 048
  109. CLOZARIL [Suspect]
     Active Substance: CLOZAPINE
     Dosage: 100 MILLIGRAM DAILY; 100 MILLIGRAM, QD, DURATION : 1 DAY
     Route: 048
     Dates: start: 20191223, end: 20191223
  110. CLOZARIL [Suspect]
     Active Substance: CLOZAPINE
     Dosage: 600 MILLIGRAM DAILY; 600 MILLIGRAM, QD, DURATION : 1 YEAR
     Route: 048
     Dates: start: 20200521, end: 2021
  111. CLOZARIL [Suspect]
     Active Substance: CLOZAPINE
     Dosage: 800 MILLIGRAM DAILY; 400 MILLIGRAM, BID
     Route: 048
  112. CLOZARIL [Suspect]
     Active Substance: CLOZAPINE
     Dosage: 245 MILLIGRAM DAILY; 245 MILLIGRAM, QD, DURATION : 1 DAY
     Route: 048
     Dates: start: 20190823, end: 20190823
  113. CLOZARIL [Suspect]
     Active Substance: CLOZAPINE
     Dosage: 400 MILLIGRAM DAILY; 200 MILLIGRAM, BID
     Route: 048
  114. CLOZARIL [Suspect]
     Active Substance: CLOZAPINE
     Dosage: 200 MILLIGRAM DAILY; 200 MILLIGRAM, QD
     Route: 065
  115. CLOZARIL [Suspect]
     Active Substance: CLOZAPINE
     Dosage: 275 MILLIGRAM DAILY; 275 MILLIGRAM, QD, THERAPY START DATE: NASK
     Route: 048
     Dates: end: 20200521
  116. CLOZARIL [Suspect]
     Active Substance: CLOZAPINE
     Dosage: 50 MILLIGRAM DAILY; 50 MILLIGRAM, QD
     Route: 048
  117. CLOZARIL [Suspect]
     Active Substance: CLOZAPINE
     Dosage: 300 MILLIGRAM DAILY; 300 MILLIGRAM, QD, THERAPY END DATE: NASK
     Route: 065
     Dates: start: 20100823
  118. CLOZARIL [Suspect]
     Active Substance: CLOZAPINE
     Dosage: 6000 MILLIGRAM, THERAPY END DATE : NASK
     Route: 048
     Dates: start: 20200521
  119. CLOZARIL [Suspect]
     Active Substance: CLOZAPINE
     Dosage: 400 MILLIGRAM DAILY; 400 MG, QD
     Route: 048
  120. CLOZARIL [Suspect]
     Active Substance: CLOZAPINE
     Dosage: 100 MILLIGRAM DAILY; 100 MILLIGRAM, QD, THERAPY END DATE : NASK
     Route: 048
     Dates: start: 2011
  121. CLOZARIL [Suspect]
     Active Substance: CLOZAPINE
     Dosage: UNK, DURATION : 15 DAYS
     Route: 048
     Dates: start: 20191209, end: 20191223
  122. CLOZARIL [Suspect]
     Active Substance: CLOZAPINE
     Dosage: 275 MILLIGRAM DAILY; 275 MILLIGRAM, QD, DURATION : 1 DAY
     Route: 048
     Dates: start: 20200521, end: 20200521
  123. CLOZARIL [Suspect]
     Active Substance: CLOZAPINE
     Dosage: 400 MILLIGRAM DAILY; 400 MILLIGRAM, QD, DURATION : 15 DAYS
     Route: 048
     Dates: start: 20191209, end: 20191223
  124. CLOZARIL [Suspect]
     Active Substance: CLOZAPINE
     Dosage: 245 MILLIGRAM DAILY; 245 MILLIGRAM, QD, THERAPY END DATE: NASK
     Route: 048
     Dates: start: 20100823
  125. CLOZARIL [Suspect]
     Active Substance: CLOZAPINE
     Dosage: 400 MILLIGRAM DAILY; 400 MILLIGRAM, QD, THERAPY END DATE : NASK
     Route: 048
     Dates: start: 2011
  126. CLOZARIL [Suspect]
     Active Substance: CLOZAPINE
     Dosage: 800 MILLIGRAM DAILY; 400 MILLIGRAM, BID, THERAPY END DATE : NASK
     Route: 048
     Dates: start: 20200207
  127. CLOZARIL [Suspect]
     Active Substance: CLOZAPINE
     Dosage: 600 MILLIGRAM DAILY; 600 MILLIGRAM, QD, THERAPY END DATE : NASK
     Route: 048
     Dates: start: 2011
  128. CLOZARIL [Suspect]
     Active Substance: CLOZAPINE
     Dosage: 600 MILLIGRAM DAILY; 600 MILLIGRAM, QD , DURATION : 17 DAYS
     Route: 048
     Dates: start: 20191207, end: 20191223
  129. CLOZARIL [Suspect]
     Active Substance: CLOZAPINE
     Dosage: 1 DOSAGE FORMS DAILY; 1 DOSAGE FORM, QD, THERAPY END DATE : NASK
     Route: 048
     Dates: start: 2011
  130. CLOZARIL [Suspect]
     Active Substance: CLOZAPINE
     Dosage: 6000 MILLIGRAM, THERAPY END DATE : NASK
     Route: 048
     Dates: start: 20100823
  131. CLOZARIL [Suspect]
     Active Substance: CLOZAPINE
     Dosage: 245 MILLIGRAM, THERAPY END DATE  : NASK
     Route: 048
     Dates: start: 20191207
  132. CLOZARIL [Suspect]
     Active Substance: CLOZAPINE
     Dosage: 50 MILLIGRAM DAILY; 50 MILLIGRAM, QD, DURATION : 15 DAYS
     Route: 048
     Dates: start: 20191209, end: 20191223
  133. CLOZARIL [Suspect]
     Active Substance: CLOZAPINE
     Dosage: UNK, DURATION  : 1 DAY
     Route: 048
     Dates: start: 20191223, end: 20191223
  134. CLOZARIL [Suspect]
     Active Substance: CLOZAPINE
     Dosage: 245 MILLIGRAM DAILY; 245 MILLIGRAM, QD, DURATION : 15 DAYS
     Route: 048
     Dates: start: 20191209, end: 20191223
  135. ZUCLOPENTHIXOL [Suspect]
     Active Substance: ZUCLOPENTHIXOL
     Indication: Product used for unknown indication
     Dosage: 400 MILLIGRAM, QWK, DURATION  : 105 DAYS
     Route: 030
     Dates: start: 20040217, end: 20040601
  136. ZUCLOPENTHIXOL [Suspect]
     Active Substance: ZUCLOPENTHIXOL
     Dosage: 400 MILLIGRAM, QWK
     Route: 030
  137. ZUCLOPENTHIXOL [Suspect]
     Active Substance: ZUCLOPENTHIXOL
     Dosage: 800 MILLIGRAM, QWK, THERAPY START DATE : NASK
     Route: 030
     Dates: end: 20040217
  138. ZUCLOPENTHIXOL [Suspect]
     Active Substance: ZUCLOPENTHIXOL
     Dosage: 300 MILLIGRAM, QWK, THERAPY END DATE : NASK
     Route: 030
     Dates: start: 20091018
  139. ZUCLOPENTHIXOL [Suspect]
     Active Substance: ZUCLOPENTHIXOL
     Dosage: 800 MILLIGRAM, QWK, DURATION : 378 DAYS
     Route: 030
     Dates: start: 20030204, end: 20040217
  140. ZUCLOPENTHIXOL [Suspect]
     Active Substance: ZUCLOPENTHIXOL
     Dosage: 400 MILLIGRAM, THERAPY END DATE : NASK
     Route: 030
     Dates: start: 20040901
  141. ZUCLOPENTHIXOL [Suspect]
     Active Substance: ZUCLOPENTHIXOL
     Dosage: 400 MILLIGRAM, THERAPY START DATE : NASK
     Route: 030
     Dates: end: 20041018
  142. ZUCLOPENTHIXOL [Suspect]
     Active Substance: ZUCLOPENTHIXOL
     Dosage: 400 MILLIGRAM, QW, DURATION  : 106 DAYS
     Route: 030
     Dates: start: 20040217, end: 20040601
  143. ZUCLOPENTHIXOL [Suspect]
     Active Substance: ZUCLOPENTHIXOL
     Dosage: 300 MILLIGRAM DAILY; 300 MILLIGRAM, QD, THERAPY END DATE : NASK
     Route: 030
     Dates: start: 20091009
  144. ZUCLOPENTHIXOL [Suspect]
     Active Substance: ZUCLOPENTHIXOL
     Dosage: 300 MG, QW (300 MILLIGRAM I.M WEEKLY), DURATION  : 7 YEARS
     Route: 030
     Dates: start: 20091009
  145. ZUCLOPENTHIXOL [Suspect]
     Active Substance: ZUCLOPENTHIXOL
     Dosage: 300 MILLIGRAM, QWK, THERAPY END DATE : NASK
     Route: 030
     Dates: start: 20091018
  146. ZUCLOPENTHIXOL [Suspect]
     Active Substance: ZUCLOPENTHIXOL
     Dosage: 400 MILLIGRAM, QWK, DURATION : 378 DAYS
     Route: 030
     Dates: start: 20030204, end: 20040217
  147. ZUCLOPENTHIXOL [Suspect]
     Active Substance: ZUCLOPENTHIXOL
     Dosage: 300 MILLIGRAM, QWK, THERAPY END DATE: NASK
     Route: 030
     Dates: start: 20091018
  148. ZUCLOPENTHIXOL [Suspect]
     Active Substance: ZUCLOPENTHIXOL
     Dosage: 400 MILLIGRAM, THERAPY START DATE  : NASK
     Route: 030
     Dates: end: 20040601
  149. ZUCLOPENTHIXOL [Suspect]
     Active Substance: ZUCLOPENTHIXOL
     Dosage: 400 MILLIGRAM, THERAPY END DATE : NASK
     Route: 030
     Dates: start: 20091018
  150. ZUCLOPENTHIXOL [Suspect]
     Active Substance: ZUCLOPENTHIXOL
     Dosage: 800 MILLIGRAM, QWK, DURATION : 378 DAYS
     Route: 030
     Dates: start: 20030204, end: 20040217
  151. ZUCLOPENTHIXOL [Suspect]
     Active Substance: ZUCLOPENTHIXOL
     Dosage: 400 MILLIGRAM OTHER (BIWEEKLY), DURATION : 1 DAY
     Route: 030
     Dates: start: 20041018, end: 20041018
  152. ZUCLOPENTHIXOL [Suspect]
     Active Substance: ZUCLOPENTHIXOL
     Dosage: 400 MILLIGRAM, QWK
     Route: 030
  153. ZUCLOPENTHIXOL [Suspect]
     Active Substance: ZUCLOPENTHIXOL
     Dosage: 400 MILLIGRAM, CYCLICAL
     Route: 030
  154. ZUCLOPENTHIXOL [Suspect]
     Active Substance: ZUCLOPENTHIXOL
     Dosage: 800 MILLIGRAM, QWK, DURATION : 1 DAY
     Route: 030
     Dates: start: 20041018, end: 20041018
  155. ZUCLOPENTHIXOL [Suspect]
     Active Substance: ZUCLOPENTHIXOL
     Dosage: 800 MILLIGRAM, QWK, DURATION  : 139 DAYS
     Route: 030
     Dates: start: 20040601, end: 20041018
  156. ZUCLOPENTHIXOL [Suspect]
     Active Substance: ZUCLOPENTHIXOL
     Dosage: 400 MILLIGRAM, DURATION  : 1 DAY
     Route: 030
     Dates: start: 20041018, end: 20041018
  157. ZUCLOPENTHIXOL [Suspect]
     Active Substance: ZUCLOPENTHIXOL
     Dosage: UNK
     Route: 030
  158. ZUCLOPENTHIXOL [Suspect]
     Active Substance: ZUCLOPENTHIXOL
     Dosage: 400 MILLIGRAM, DURATION  : 139 DAYS
     Route: 030
     Dates: start: 20040601, end: 20041018
  159. CHLORPHENIRAMINE MALEATE [Concomitant]
     Active Substance: CHLORPHENIRAMINE MALEATE
     Indication: Product used for unknown indication
     Dosage: 10 MILLIGRAM, QWK
     Route: 058
     Dates: start: 20151111
  160. CHOLECALCIFEROL [Concomitant]
     Active Substance: CHOLECALCIFEROL
     Indication: Product used for unknown indication
     Dosage: 2 DOSAGE FORMS DAILY; 2 DOSAGE FORM, QD
     Route: 048
  161. CALCIUM\CHOLECALCIFEROL [Concomitant]
     Active Substance: CALCIUM\CHOLECALCIFEROL
     Indication: Product used for unknown indication
     Dosage: 2 DOSAGE FORMS DAILY; 2 DOSAGE FORM, QD
     Route: 048
  162. CALCIUM\CHOLECALCIFEROL [Concomitant]
     Active Substance: CALCIUM\CHOLECALCIFEROL
     Dosage: 2 DOSAGE FORMS DAILY; 2 DOSAGE FORM, QD
     Dates: start: 20091018
  163. AMOXICILLIN\CLAVULANATE POTASSIUM [Concomitant]
     Active Substance: AMOXICILLIN\CLAVULANATE POTASSIUM
     Indication: Febrile neutropenia
     Dosage: 625 MG (EVERY 0.33 DAYS, CUMULATIVE DOSE: 16875), DURATION : 3 DAYS
     Dates: start: 20151122, end: 20151125
  164. AMOXICILLIN\CLAVULANATE POTASSIUM [Concomitant]
     Active Substance: AMOXICILLIN\CLAVULANATE POTASSIUM
     Dosage: 2500 MILLIGRAM DAILY; 625 MG, QID, UNIT DOSE : 2500 MG, DURATION : 3 DAYS
     Dates: start: 20151111
  165. AMOXICILLIN\CLAVULANATE POTASSIUM [Concomitant]
     Active Substance: AMOXICILLIN\CLAVULANATE POTASSIUM
     Dosage: 2500 MILLIGRAM DAILY; 625 MG, QID, UNIT DOSE : 2500 MG, OD, DURATION : 3 DAYS
     Route: 048
     Dates: start: 20151122, end: 20151125
  166. AMOXICILLIN\CLAVULANATE POTASSIUM [Concomitant]
     Active Substance: AMOXICILLIN\CLAVULANATE POTASSIUM
     Dosage: 2500 MILLIGRAM DAILY; 2500 MILLIGRAM, OD
     Dates: start: 20151122
  167. AMOXICILLIN\CLAVULANATE POTASSIUM [Concomitant]
     Active Substance: AMOXICILLIN\CLAVULANATE POTASSIUM
     Dosage: 2500 MILLIGRAM DAILY; 2500 MILLIGRAM, OD, DURATION : 4 DAYS
     Dates: start: 20151122, end: 20151125
  168. DULOXETINE [Concomitant]
     Active Substance: DULOXETINE
     Indication: Product used for unknown indication
     Dosage: UNK
  169. GENTAMICIN [Concomitant]
     Active Substance: GENTAMICIN
     Indication: Febrile neutropenia
     Dosage: UNK
     Route: 040
     Dates: start: 20151121, end: 201511
  170. LEVOFLOXACIN [Concomitant]
     Active Substance: LEVOFLOXACIN
     Indication: Febrile neutropenia
     Dosage: 500 MILLIGRAM DAILY; 500 MG, DAILY
     Route: 040
     Dates: start: 20151125
  171. MIRTAZAPINE [Concomitant]
     Active Substance: MIRTAZAPINE
     Indication: Product used for unknown indication
     Dosage: 15 MILLIGRAM DAILY; 15 MG, DAILY
     Route: 048
     Dates: start: 201510
  172. MORPHINE [Concomitant]
     Active Substance: MORPHINE
     Indication: Pain
     Dosage: 30 MILLIGRAM
     Dates: start: 201509
  173. MORPHINE [Concomitant]
     Active Substance: MORPHINE
     Dosage: 60 MILLIGRAM DAILY; 30 MILLIGRAM, BID
     Dates: start: 201509
  174. MORPHINE [Concomitant]
     Active Substance: MORPHINE
     Dosage: 15 MILLIGRAM DAILY; 15 MG, DAILY
     Route: 048
     Dates: start: 201510
  175. MORPHINE [Concomitant]
     Active Substance: MORPHINE
     Dosage: 60 MILLIGRAM DAILY; 60 MILLIGRAM, QD
     Dates: start: 201509
  176. MORPHINE [Concomitant]
     Active Substance: MORPHINE
     Dosage: 60 MILLIGRAM DAILY; 60 MILLIGRAM, QD
     Dates: start: 201509
  177. MORPHINE SULFATE [Concomitant]
     Active Substance: MORPHINE SULFATE
     Indication: Product used for unknown indication
     Dosage: 10 MG
     Route: 065
     Dates: start: 201509
  178. ACETAMINOPHEN [Concomitant]
     Active Substance: ACETAMINOPHEN
     Indication: Pain
     Dosage: 500 MILLIGRAM
     Route: 048
     Dates: start: 20150127
  179. ACETAMINOPHEN [Concomitant]
     Active Substance: ACETAMINOPHEN
     Dosage: 15 MILLIGRAM DAILY; 15 MILLIGRAM, QD
     Dates: start: 201510
  180. PREGABALIN [Concomitant]
     Active Substance: PREGABALIN
     Indication: Product used for unknown indication
     Dosage: 150 MILLIGRAM DAILY; 150 MILLIGRAM, QD
     Dates: start: 201509
  181. PREGABALIN [Concomitant]
     Active Substance: PREGABALIN
     Dosage: 300 MILLIGRAM DAILY; 150 MILLIGRAM, BID
     Dates: start: 201509
  182. PREGABALIN [Concomitant]
     Active Substance: PREGABALIN
     Dosage: 150 MILLIGRAM DAILY; 75 MG, BID
     Route: 048
     Dates: start: 201509
  183. RANITIDINE [Concomitant]
     Active Substance: RANITIDINE
     Indication: Gastrooesophageal reflux disease
     Dosage: 150 MILLIGRAM, QWK
     Route: 065
  184. RANITIDINE [Concomitant]
     Active Substance: RANITIDINE
     Dosage: 50 MILLIGRAM, QWK
     Route: 065
     Dates: start: 20151111
  185. RANITIDINE [Concomitant]
     Active Substance: RANITIDINE
     Dosage: 50 MG, WEEKLY (1/W)
     Route: 058
  186. RANITIDINE [Concomitant]
     Active Substance: RANITIDINE
     Dosage: 75 MILLIGRAM, QWK
     Route: 065
     Dates: start: 20151111
  187. TAZOBACTAM SODIUM [Concomitant]
     Active Substance: TAZOBACTAM SODIUM
     Indication: Febrile neutropenia
     Dosage: UNK
     Route: 065
     Dates: start: 20151121
  188. PIPERACILLIN SODIUM\TAZOBACTAM SODIUM [Concomitant]
     Active Substance: PIPERACILLIN SODIUM\TAZOBACTAM SODIUM
     Indication: Febrile neutropenia
     Dosage: UNK
     Route: 065
     Dates: start: 20151121, end: 201511
  189. DENOSUMAB [Concomitant]
     Active Substance: DENOSUMAB
     Indication: Product used for unknown indication

REACTIONS (29)
  - Neutrophil count increased [Fatal]
  - Platelet count decreased [Fatal]
  - Extrapyramidal disorder [Fatal]
  - Leukopenia [Fatal]
  - Lymphocyte count decreased [Fatal]
  - Disease progression [Fatal]
  - Neutropenia [Fatal]
  - Seizure [Fatal]
  - Overdose [Fatal]
  - Lymphocyte count abnormal [Fatal]
  - Neuropathy peripheral [Fatal]
  - COVID-19 [Fatal]
  - Incorrect dose administered [Fatal]
  - Hallucination, auditory [Fatal]
  - Psychotic disorder [Fatal]
  - Schizophrenia [Fatal]
  - Delusion of grandeur [Fatal]
  - Fatigue [Fatal]
  - Fatigue [Fatal]
  - Fatigue [Fatal]
  - Off label use [Fatal]
  - Affective disorder [Fatal]
  - Cellulitis [Unknown]
  - Nausea [Unknown]
  - Diarrhoea [Unknown]
  - Rhinalgia [Unknown]
  - Alopecia [Unknown]
  - Mucosal inflammation [Unknown]
  - Dyspepsia [Unknown]

NARRATIVE: CASE EVENT DATE: 20151101
